FAERS Safety Report 16879569 (Version 2)
Quarter: 2019Q4

REPORT INFORMATION
  Report Type: Spontaneous
  Country: JP (occurrence: JP)
  Receive Date: 20191003
  Receipt Date: 20191018
  Transmission Date: 20200122
  Serious: Yes (Hospitalization)
  Sender: FDA-Public Use
  Company Number: JP-ASTRAZENECA-2019SF36311

PATIENT
  Age: 76 Year
  Sex: Female

DRUGS (3)
  1. BUFFERIN [Concomitant]
     Active Substance: ASPIRIN
     Route: 065
  2. TEPRENONE [Concomitant]
     Active Substance: TEPRENONE
  3. NEXIUM [Suspect]
     Active Substance: ESOMEPRAZOLE MAGNESIUM
     Route: 048

REACTIONS (1)
  - Drug eruption [Not Recovered/Not Resolved]

NARRATIVE: CASE EVENT DATE: 20190915
